FAERS Safety Report 23669242 (Version 3)
Quarter: 2024Q3

REPORT INFORMATION
  Report Type: Spontaneous
  Country: US (occurrence: US)
  Receive Date: 20240325
  Receipt Date: 20240905
  Transmission Date: 20241016
  Serious: No
  Sender: PFIZER
  Company Number: US-PFIZER INC-202400071011

PATIENT
  Age: 36 Year
  Sex: Female

DRUGS (1)
  1. OXBRYTA [Suspect]
     Active Substance: VOXELOTOR
     Dosage: 1500 MG, 1X/DAY, (500 MG 3 TABLETS ONCE DAILY, ORALLY)
     Route: 048
     Dates: start: 202307, end: 2024

REACTIONS (1)
  - Vomiting [Unknown]
